FAERS Safety Report 6547258-0 (Version None)
Quarter: 2010Q1

REPORT INFORMATION
  Report Type: 
  Country: None (occurrence: None)
  Receive Date: 20100122
  Receipt Date: 20090702
  Transmission Date: 20100710
  Serious: No
  Sender: FDA-Public Use
  Company Number: US-BAUSCH-2009BL003285

PATIENT
  Age: 47 Year
  Sex: Female
  Weight: 70 kg

DRUGS (1)
  1. ZYLET [Suspect]
     Indication: EYE INFLAMMATION
     Route: 047
     Dates: start: 20090521, end: 20090525

REACTIONS (1)
  - IRITIS [None]
